FAERS Safety Report 5388482-2 (Version None)
Quarter: 2007Q3

REPORT INFORMATION
  Report Type: 
  Country: None (occurrence: None)
  Receive Date: 20070716
  Receipt Date: 20070709
  Transmission Date: 20080115
  Serious: Yes (Other)
  Sender: FDA-Public Use
  Company Number: US-PFIZER INC-2006082194

PATIENT
  Sex: Female
  Weight: 74.8 kg

DRUGS (3)
  1. CELEBREX [Suspect]
     Indication: ARTHRITIS
  2. GLIPIZIDE [Concomitant]
  3. HYDROCHLOROTHIAZIDE [Concomitant]
     Dosage: DAILY DOSE:25MG

REACTIONS (8)
  - BRAIN DEATH [None]
  - CEREBROVASCULAR ACCIDENT [None]
  - COGNITIVE DISORDER [None]
  - DIZZINESS [None]
  - ECCHYMOSIS [None]
  - MEMORY IMPAIRMENT [None]
  - MITRAL VALVE INCOMPETENCE [None]
  - MUSCULAR WEAKNESS [None]
